FAERS Safety Report 8296516-0 (Version None)
Quarter: 2012Q2

REPORT INFORMATION
  Report Type: 
  Country: None (occurrence: None)
  Receive Date: 20120418
  Receipt Date: 20120416
  Transmission Date: 20120825
  Serious: No
  Sender: FDA-Public Use
  Company Number: US-PFIZER INC-2012094164

PATIENT
  Sex: Female

DRUGS (2)
  1. NEURONTIN [Suspect]
     Indication: SLEEP DISORDER
     Dosage: 100 MG, 1X/DAY
     Route: 048
     Dates: start: 20120402, end: 20120406
  2. CELEXA [Concomitant]
     Indication: DEPRESSION
     Dosage: 30 MG, 1X/DAY

REACTIONS (2)
  - CONSTIPATION [None]
  - FLATULENCE [None]
